FAERS Safety Report 11392504 (Version 1)
Quarter: 2015Q3

REPORT INFORMATION
  Report Type: Report from Study
  Country: LB (occurrence: LB)
  Receive Date: 20150818
  Receipt Date: 20150818
  Transmission Date: 20151125
  Serious: Yes (Other)
  Sender: FDA-Public Use
  Company Number: PHHY2015LB094580

PATIENT
  Sex: Female

DRUGS (1)
  1. TASIGNA [Suspect]
     Active Substance: NILOTINIB
     Dosage: DRUG EXPOSURE VIA FATHER

REACTIONS (4)
  - Twin pregnancy [Unknown]
  - Exposure via father [Unknown]
  - Premature baby [Unknown]
  - Normal newborn [Unknown]
